FAERS Safety Report 17460758 (Version 1)
Quarter: 2020Q1

REPORT INFORMATION
  Report Type: Spontaneous
  Country: CN (occurrence: CN)
  Receive Date: 20200226
  Receipt Date: 20200226
  Transmission Date: 20200409
  Serious: Yes (Hospitalization, Other)
  Sender: FDA-Public Use
  Company Number: CN-PFIZER INC-2020069788

PATIENT
  Age: 83 Year
  Sex: Female

DRUGS (3)
  1. HYDROXYCHLOROQUINE SULFATE. [Concomitant]
     Active Substance: HYDROXYCHLOROQUINE SULFATE
     Dosage: 0.1 G, 2X/DAY, (BID)
  2. PREDNISONE ACETATE [Concomitant]
     Active Substance: PREDNISONE ACETATE
     Dosage: 5 MG, 1X/DAY, (QD)
  3. METHOTREXATE SODIUM. [Suspect]
     Active Substance: METHOTREXATE SODIUM
     Indication: RHEUMATOID ARTHRITIS
     Dosage: 2.5 MG, 1X/DAY, (QD)

REACTIONS (8)
  - Gastrointestinal haemorrhage [Recovered/Resolved]
  - Pancytopenia [Recovered/Resolved]
  - Liver injury [Recovered/Resolved]
  - Pneumonia [Recovered/Resolved]
  - Extra dose administered [Unknown]
  - Renal injury [Recovered/Resolved]
  - Bone marrow failure [Recovered/Resolved]
  - Multiple organ dysfunction syndrome [Recovered/Resolved]
